FAERS Safety Report 14175961 (Version 3)
Quarter: 2018Q3

REPORT INFORMATION
  Report Type: Spontaneous
  Country: US (occurrence: US)
  Receive Date: 20171109
  Receipt Date: 20180803
  Transmission Date: 20181010
  Serious: Yes (Other)
  Sender: FDA-Public Use
  Company Number: US-GILEAD-2017-0303906

PATIENT
  Age: 54 Year
  Sex: Female

DRUGS (1)
  1. EPCLUSA [Suspect]
     Active Substance: SOFOSBUVIR\VELPATASVIR
     Indication: HEPATITIS C
     Dosage: 1 DF, UNK
     Route: 048
     Dates: start: 20170102, end: 20170330

REACTIONS (5)
  - Neck mass [Not Recovered/Not Resolved]
  - Deformity [Not Recovered/Not Resolved]
  - Angioedema [Not Recovered/Not Resolved]
  - Facial paralysis [Not Recovered/Not Resolved]
  - Skin mass [Not Recovered/Not Resolved]
